FAERS Safety Report 16408787 (Version 1)
Quarter: 2019Q2

REPORT INFORMATION
  Report Type: Report from Study
  Country: US (occurrence: US)
  Receive Date: 20190610
  Receipt Date: 20190610
  Transmission Date: 20190711
  Serious: Yes (Hospitalization)
  Sender: FDA-Public Use
  Company Number: US-BAUSCH-BL-2018-019867

PATIENT
  Age: 59 Year
  Sex: Male
  Weight: 129.39 kg

DRUGS (9)
  1. XIFAXAN [Suspect]
     Active Substance: RIFAXIMIN
     Dosage: STARTED TAKING HIS REGULAR DOSE (ONE TABLET, TWO TIMES A DAY)
     Route: 048
     Dates: start: 2018
  2. NADOLOL. [Concomitant]
     Active Substance: NADOLOL
     Indication: PRODUCT USED FOR UNKNOWN INDICATION
  3. XIFAXAN [Suspect]
     Active Substance: RIFAXIMIN
     Route: 048
     Dates: start: 2019
  4. LACTULOSE. [Concomitant]
     Active Substance: LACTULOSE
     Indication: PRODUCT USED FOR UNKNOWN INDICATION
     Dosage: 2 (UNSPECIFIED UNIT)
  5. NIACIN. [Concomitant]
     Active Substance: NIACIN
     Indication: PRODUCT USED FOR UNKNOWN INDICATION
  6. XIFAXAN [Suspect]
     Active Substance: RIFAXIMIN
     Indication: HEPATIC FAILURE
     Route: 048
     Dates: start: 2017, end: 20180702
  7. ANDROGEL [Concomitant]
     Active Substance: TESTOSTERONE
     Indication: PRODUCT USED FOR UNKNOWN INDICATION
  8. XIFAXAN [Suspect]
     Active Substance: RIFAXIMIN
     Dosage: ONE TABLET BY MOUTH IN THE MORNING HE WAS RUNNING OUT OF THE MEDICATION
     Route: 048
     Dates: start: 20180703
  9. MULTIVITAMIN [Concomitant]
     Active Substance: VITAMINS
     Indication: PRODUCT USED FOR UNKNOWN INDICATION

REACTIONS (9)
  - Therapy cessation [Unknown]
  - Inability to afford medication [Unknown]
  - Ammonia abnormal [Recovered/Resolved]
  - Product dose omission [Unknown]
  - Intentional product use issue [Unknown]
  - Malaise [Recovered/Resolved]
  - Dizziness [Recovered/Resolved]
  - Hospitalisation [Recovered/Resolved]
  - Memory impairment [Unknown]

NARRATIVE: CASE EVENT DATE: 2017
